FAERS Safety Report 4924510-3 (Version None)
Quarter: 2006Q1

REPORT INFORMATION
  Report Type: 
  Country: None (occurrence: None)
  Receive Date: 20060222
  Receipt Date: 20060214
  Transmission Date: 20060701
  Serious: Yes (Hospitalization)
  Sender: FDA-Public Use
  Company Number: 2006021935

PATIENT
  Age: 53 Year
  Sex: Female

DRUGS (2)
  1. GENOTROPIN [Suspect]
     Indication: HYPOPITUITARISM
     Dosage: 0.4 MG (0.4 MG, DAILY), SUBCUTANEOUS
     Route: 058
     Dates: start: 19980101
  2. CLORAZEPATE DIPOTASSIUM [Concomitant]

REACTIONS (1)
  - CARPAL TUNNEL SYNDROME [None]
